FAERS Safety Report 5750258-1 (Version None)
Quarter: 2008Q2

REPORT INFORMATION
  Report Type: 
  Country: None (occurrence: None)
  Receive Date: 20080527
  Receipt Date: 20080515
  Transmission Date: 20081010
  Serious: Yes (Other)
  Sender: FDA-Public Use
  Company Number: US-PFIZER INC-2008009891

PATIENT
  Sex: Female

DRUGS (3)
  1. CHANTIX [Suspect]
     Indication: SMOKING CESSATION THERAPY
     Route: 048
  2. METHADONE HCL [Suspect]
  3. KLONOPIN [Suspect]

REACTIONS (8)
  - BIOPSY [None]
  - COCCYDYNIA [None]
  - FALL [None]
  - FATIGUE [None]
  - LYMPHADENOPATHY [None]
  - NECK PAIN [None]
  - NEOPLASM [None]
  - SOMNOLENCE [None]
